FAERS Safety Report 8298896-9 (Version None)
Quarter: 2012Q2

REPORT INFORMATION
  Report Type: 
  Country: None (occurrence: None)
  Receive Date: 20120419
  Receipt Date: 20120413
  Transmission Date: 20120825
  Serious: Yes (Other)
  Sender: FDA-Public Use
  Company Number: US-PFIZER INC-2012093944

PATIENT
  Sex: Male
  Weight: 71.655 kg

DRUGS (1)
  1. POTASSIUM PENICILLIN G [Suspect]
     Dosage: UNK

REACTIONS (1)
  - ANAPHYLACTIC REACTION [None]
